FAERS Safety Report 6843434-8 (Version None)
Quarter: 2010Q3

REPORT INFORMATION
  Report Type: 
  Country: None (occurrence: None)
  Receive Date: 20100712
  Receipt Date: 20100706
  Transmission Date: 20110219
  Serious: Yes (Other)
  Sender: FDA-Public Use
  Company Number: 2010SP031937

PATIENT
  Age: 53 Year
  Sex: Female
  Weight: 70 kg

DRUGS (2)
  1. PEG-INTRON [Suspect]
     Indication: HEPATITIS C
     Dosage: 100 MCG;QW;SC
     Route: 058
     Dates: start: 20091126, end: 20100512
  2. REBETOL [Suspect]
     Indication: HEPATITIS C
     Dates: start: 20091126, end: 20100512

REACTIONS (5)
  - DIZZINESS [None]
  - HEARING IMPAIRED [None]
  - NO THERAPEUTIC RESPONSE [None]
  - POLYMERASE CHAIN REACTION [None]
  - TINNITUS [None]
